FAERS Safety Report 18572920 (Version 1)
Quarter: 2020Q4

REPORT INFORMATION
  Report Type: Spontaneous
  Country: ES (occurrence: ES)
  Receive Date: 20201203
  Receipt Date: 20201203
  Transmission Date: 20210114
  Serious: Yes (Hospitalization)
  Sender: FDA-Public Use
  Company Number: ES-GRANULES-ES-2020GRALIT00066

PATIENT
  Age: 27 Year
  Sex: Female

DRUGS (5)
  1. PREDNISOLONE. [Concomitant]
     Active Substance: PREDNISOLONE
     Indication: PERICHONDRITIS
     Route: 065
  2. IBUPROFEN. [Suspect]
     Active Substance: IBUPROFEN
     Indication: PERICHONDRITIS
     Route: 065
  3. MOXIFLOXACIN. [Concomitant]
     Active Substance: MOXIFLOXACIN
     Indication: PERICHONDRITIS
     Route: 065
  4. FLUCLOXACILLIN [Interacting]
     Active Substance: FLUCLOXACILLIN
     Indication: HERPES ZOSTER OTICUS
     Route: 065
  5. ACYCLOVIR. [Interacting]
     Active Substance: ACYCLOVIR
     Indication: HERPES ZOSTER OTICUS
     Route: 065

REACTIONS (1)
  - Drug ineffective [Unknown]
